FAERS Safety Report 9105500 (Version 1)
Quarter: 2013Q1

REPORT INFORMATION
  Report Type: Spontaneous
  Country: US (occurrence: US)
  Receive Date: 20130221
  Receipt Date: 20130221
  Transmission Date: 20140127
  Serious: No
  Sender: FDA-Public Use
  Company Number: US-TEVA-340632USA

PATIENT
  Age: 38 Year
  Sex: Female

DRUGS (1)
  1. TREANDA [Suspect]
     Indication: LYMPHOMA
     Dosage: 90 MG/M2

REACTIONS (2)
  - Blood pressure decreased [Unknown]
  - Chills [Unknown]
